FAERS Safety Report 21669526 (Version 3)
Quarter: 2023Q1

REPORT INFORMATION
  Report Type: Spontaneous
  Country: US (occurrence: US)
  Receive Date: 20221201
  Receipt Date: 20230203
  Transmission Date: 20230417
  Serious: No
  Sender: FDA-Public Use
  Company Number: US-PFIZER INC-202200658953

PATIENT
  Age: 1 Year
  Sex: Female

DRUGS (1)
  1. EUCRISA [Suspect]
     Active Substance: CRISABOROLE
     Dosage: UNK, 2X/DAY (APPLY TWICE A DAY TO AFFECTED AREAS AS NECESSARY)

REACTIONS (4)
  - Extra dose administered [Unknown]
  - Pruritus [Unknown]
  - Sleep disorder [Unknown]
  - Hyperaesthesia [Unknown]
